FAERS Safety Report 24224234 (Version 1)
Quarter: 2024Q3

REPORT INFORMATION
  Report Type: Spontaneous
  Country: US (occurrence: None)
  Receive Date: 20240818
  Receipt Date: 20240818
  Transmission Date: 20241016
  Serious: Yes (Other)
  Sender: Public
  Company Number: None

PATIENT
  Age: 46 Year
  Sex: Female
  Weight: 74.25 kg

DRUGS (6)
  1. KETAMINE [Suspect]
     Active Substance: KETAMINE
     Indication: Post-traumatic stress disorder
     Dosage: OTHER QUANTITY : 1 SUPPOSITORY(IES)?OTHER FREQUENCY : ONCE EVERY THREE D?
     Route: 054
     Dates: start: 20230930, end: 20240701
  2. KETAMINE [Suspect]
     Active Substance: KETAMINE
     Dates: start: 20230817, end: 20230930
  3. TRAZODONE [Concomitant]
     Active Substance: TRAZODONE HYDROCHLORIDE
  4. PROPRANOLOL [Concomitant]
  5. VITAMIN D [Concomitant]
     Active Substance: VITAMIN D NOS
  6. ZINC [Concomitant]
     Active Substance: ZINC

REACTIONS (5)
  - Therapeutic product effect decreased [None]
  - Dizziness [None]
  - Nausea [None]
  - Coordination abnormal [None]
  - Product compounding quality issue [None]

NARRATIVE: CASE EVENT DATE: 20240325
